FAERS Safety Report 10561484 (Version 3)
Quarter: 2014Q4

REPORT INFORMATION
  Report Type: Spontaneous
  Country: US (occurrence: US)
  Receive Date: 20141103
  Receipt Date: 20141216
  Transmission Date: 20150529
  Serious: Yes (Other)
  Sender: FDA-Public Use
  Company Number: US-TEVA-519033USA

PATIENT
  Age: 74 Year
  Sex: Female
  Weight: 47.67 kg

DRUGS (3)
  1. LIPITOR [Suspect]
     Active Substance: ATORVASTATIN CALCIUM
     Route: 065
  2. PRAVASTATIN [Suspect]
     Active Substance: PRAVASTATIN\PRAVASTATIN SODIUM
     Route: 065
  3. MEVACOR [Suspect]
     Active Substance: LOVASTATIN
     Route: 065

REACTIONS (6)
  - Insomnia [Unknown]
  - Drug hypersensitivity [Unknown]
  - Cerebrovascular accident [Unknown]
  - Myalgia [Unknown]
  - Stress [Unknown]
  - Muscle disorder [Unknown]

NARRATIVE: CASE EVENT DATE: 201404
